FAERS Safety Report 20770312 (Version 1)
Quarter: 2022Q2

REPORT INFORMATION
  Report Type: Spontaneous
  Country: US (occurrence: US)
  Receive Date: 20220429
  Receipt Date: 20220429
  Transmission Date: 20220721
  Serious: Yes (Other)
  Sender: FDA-Public Use
  Company Number: US-BRISTOL-MYERS SQUIBB COMPANY-2022-025317

PATIENT
  Age: 72 Year
  Sex: Female

DRUGS (1)
  1. REVLIMID [Suspect]
     Active Substance: LENALIDOMIDE
     Indication: Product used for unknown indication
     Dosage: TAKE 1 CAPSULE (25MG TOTAL) BY MOUTH DAILY FOR 14 DAYS AND OFF 7 DAYS
     Route: 048

REACTIONS (3)
  - Restless legs syndrome [Unknown]
  - Neuropathy peripheral [Unknown]
  - Intentional product use issue [Unknown]
